FAERS Safety Report 4606493-9 (Version None)
Quarter: 2005Q2

REPORT INFORMATION
  Report Type: 
  Country: None (occurrence: None)
  Receive Date: 20050215
  Receipt Date: 20040407
  Transmission Date: 20051028
  Serious: Yes (Life-Threatening)
  Sender: FDA-Public Use
  Company Number: 200409019

PATIENT
  Sex: Female

DRUGS (2)
  1. GAMMAR-P I.V. [Suspect]
     Dosage: SEE IMAGE
     Route: 042
     Dates: start: 20040329, end: 20040329
  2. GAMMAR-P I.V. [Suspect]
     Dosage: SEE IMAGE
     Route: 042
     Dates: start: 20040330, end: 20040330

REACTIONS (4)
  - DYSPNOEA [None]
  - NAUSEA [None]
  - PRURITUS GENERALISED [None]
  - URTICARIA [None]
